FAERS Safety Report 26133212 (Version 2)
Quarter: 2025Q4

REPORT INFORMATION
  Report Type: Spontaneous
  Country: EU (occurrence: EU)
  Receive Date: 20251209
  Receipt Date: 20251215
  Transmission Date: 20260117
  Serious: Yes (Other)
  Sender: TEVA
  Company Number: EU-TEVA-VS-3400657

PATIENT
  Age: 10 Year
  Sex: Female

DRUGS (1)
  1. SORAFENIB [Suspect]
     Active Substance: SORAFENIB
     Indication: Renal cell carcinoma stage III
     Dosage: RECEIVED MULTIPLE CYCLES
     Route: 065

REACTIONS (2)
  - Viral rash [Unknown]
  - Respiratory syncytial virus infection [Unknown]
